FAERS Safety Report 4992125-7 (Version None)
Quarter: 2006Q2

REPORT INFORMATION
  Report Type: 
  Country: None (occurrence: None)
  Receive Date: 20060502
  Receipt Date: 20060419
  Transmission Date: 20061013
  Serious: Yes (Death, Hospitalization)
  Sender: FDA-Public Use
  Company Number: 2006MP000542

PATIENT
  Age: 61 Year
  Sex: Female

DRUGS (1)
  1. GLIADEL [Suspect]
     Indication: GLIOBLASTOMA
     Dosage: 61.6 MG; X1; ICER
     Dates: start: 20060407, end: 20060407

REACTIONS (9)
  - COMA [None]
  - CONVULSION [None]
  - DISSEMINATED INTRAVASCULAR COAGULATION [None]
  - EPILEPSY [None]
  - HYPOTENSION [None]
  - OEDEMA [None]
  - PROCEDURAL SITE REACTION [None]
  - RED BLOOD CELL COUNT DECREASED [None]
  - THROMBOCYTOPENIA [None]
